FAERS Safety Report 23336747 (Version 1)
Quarter: 2023Q4

REPORT INFORMATION
  Report Type: Spontaneous
  Country: CA (occurrence: CA)
  Receive Date: 20231226
  Receipt Date: 20231226
  Transmission Date: 20240110
  Serious: Yes (Other)
  Sender: FDA-Public Use
  Company Number: CA-TAKEDA-2023TUS109520

PATIENT
  Age: 24 Year
  Sex: Male

DRUGS (7)
  1. ENTYVIO [Suspect]
     Active Substance: VEDOLIZUMAB
     Indication: Colitis ulcerative
     Dosage: 300 MILLIGRAM
     Route: 042
     Dates: start: 20230710
  2. ENTYVIO [Suspect]
     Active Substance: VEDOLIZUMAB
     Dosage: 300 MILLIGRAM, Q4WEEKS
     Route: 042
     Dates: start: 20230712
  3. MESALAMINE [Concomitant]
     Active Substance: MESALAMINE
     Indication: Colitis ulcerative
     Dosage: UNK UNK, QD
     Route: 054
  4. MESALAMINE [Concomitant]
     Active Substance: MESALAMINE
     Dosage: 1000 MILLIGRAM, QD
     Route: 054
  5. BUDESONIDE [Concomitant]
     Active Substance: BUDESONIDE
     Indication: Colitis ulcerative
     Dosage: 8 MILLIGRAM, QD
     Route: 048
     Dates: start: 20230705, end: 20230830
  6. MESALAMINE [Concomitant]
     Active Substance: MESALAMINE
     Indication: Colitis ulcerative
     Dosage: 4.8 GRAM, QD
     Route: 048
  7. Salofalk [Concomitant]
     Indication: Colitis ulcerative
     Dosage: UNK UNK, QD
     Route: 054

REACTIONS (4)
  - Colitis ulcerative [Not Recovered/Not Resolved]
  - Off label use [Unknown]
  - Headache [Recovered/Resolved]
  - Pyrexia [Recovered/Resolved]

NARRATIVE: CASE EVENT DATE: 20230712
